FAERS Safety Report 7265124-2 (Version None)
Quarter: 2011Q1

REPORT INFORMATION
  Report Type: 
  Country: None (occurrence: None)
  Receive Date: 20110131
  Receipt Date: 20110107
  Transmission Date: 20110831
  Serious: Yes (Hospitalization)
  Sender: FDA-Public Use
  Company Number: IT-BAYER-2011-002974

PATIENT
  Sex: Female

DRUGS (4)
  1. ASPIRIN [Suspect]
     Indication: PRODUCT USED FOR UNKNOWN INDICATION
     Dosage: 100 MG, QD
     Route: 048
     Dates: start: 20091201, end: 20101218
  2. OKI [Suspect]
     Indication: TOOTHACHE
     Dosage: 160 MG, ONCE
     Route: 048
     Dates: start: 20101217, end: 20101217
  3. TRIATEC [Concomitant]
     Dosage: UNK
     Route: 048
  4. LANTUS [Concomitant]
     Route: 058

REACTIONS (1)
  - ABDOMINAL PAIN UPPER [None]
